FAERS Safety Report 17550309 (Version 4)
Quarter: 2020Q2

REPORT INFORMATION
  Report Type: Spontaneous
  Country: DE (occurrence: DE)
  Receive Date: 20200317
  Receipt Date: 20200630
  Transmission Date: 20200713
  Serious: Yes (Hospitalization, Other)
  Sender: FDA-Public Use
  Company Number: DE-PFIZER INC-2020111808

PATIENT
  Age: 28 Year
  Sex: Female

DRUGS (2)
  1. CYTOTEC [Suspect]
     Active Substance: MISOPROSTOL
     Indication: LABOUR INDUCTION
     Dosage: 50 UG, SINGLE
     Route: 048
     Dates: start: 20110802, end: 20110802
  2. CYTOTEC [Suspect]
     Active Substance: MISOPROSTOL
     Dosage: 100 UG, SINGLE
     Route: 048
     Dates: start: 20110802, end: 20110802

REACTIONS (5)
  - Off label use [Unknown]
  - Product use in unapproved indication [Unknown]
  - Traumatic delivery [Unknown]
  - Uterine tachysystole [Unknown]
  - Abnormal labour [Unknown]

NARRATIVE: CASE EVENT DATE: 201108
